FAERS Safety Report 16613322 (Version 1)
Quarter: 2019Q3

REPORT INFORMATION
  Report Type: Report from Study
  Country: None (occurrence: US)
  Receive Date: 20190722
  Receipt Date: 20190722
  Transmission Date: 20191004
  Serious: Yes (Death)
  Sender: FDA-Public Use
  Company Number: US-ABBVIE-19K-163-2862241-00

PATIENT
  Age: 73 Year
  Sex: Male

DRUGS (4)
  1. VENCLEXTA [Suspect]
     Active Substance: VENETOCLAX
     Dosage: TAKE 2 TABLET BY MOUTH DAY 2.
     Route: 048
     Dates: start: 20190405, end: 20190405
  2. VENCLEXTA [Suspect]
     Active Substance: VENETOCLAX
     Dosage: TAKE 6 TABLET BY MOUTH DAY 6.
     Route: 048
     Dates: start: 20190407
  3. VENCLEXTA [Suspect]
     Active Substance: VENETOCLAX
     Indication: MYELOID LEUKAEMIA
     Dosage: TAKE 1 TABLET BY MOUTH DAY 1.
     Route: 048
     Dates: start: 20190404, end: 20190404
  4. VENCLEXTA [Suspect]
     Active Substance: VENETOCLAX
     Dosage: TAKE 4 TABLET BY MOUTH DAY 4.
     Route: 048
     Dates: start: 20190406, end: 20190406

REACTIONS (2)
  - Intentional product use issue [Unknown]
  - Death [Fatal]

NARRATIVE: CASE EVENT DATE: 2019
